FAERS Safety Report 13318265 (Version 3)
Quarter: 2017Q2

REPORT INFORMATION
  Report Type: Report from Study
  Country: US (occurrence: US)
  Receive Date: 20170310
  Receipt Date: 20170413
  Transmission Date: 20170830
  Serious: Yes (Hospitalization)
  Sender: FDA-Public Use
  Company Number: US-BIOGEN-2017BI00368201

PATIENT
  Sex: Male

DRUGS (1)
  1. AVONEX [Suspect]
     Active Substance: INTERFERON BETA-1A
     Indication: MULTIPLE SCLEROSIS
     Route: 065
     Dates: start: 20150504

REACTIONS (7)
  - Influenza like illness [Unknown]
  - Pyrexia [Not Recovered/Not Resolved]
  - Multiple sclerosis relapse [Recovered/Resolved]
  - Hypersensitivity [Not Recovered/Not Resolved]
  - Pneumonia aspiration [Recovered/Resolved with Sequelae]
  - Muscle disorder [Not Recovered/Not Resolved]
  - Incoherent [Unknown]
